FAERS Safety Report 9605894 (Version 2)
Quarter: 2013Q4

REPORT INFORMATION
  Report Type: Spontaneous
  Country: JP (occurrence: JP)
  Receive Date: 20131008
  Receipt Date: 20131028
  Transmission Date: 20140711
  Serious: Yes (Other)
  Sender: FDA-Public Use
  Company Number: CHPA2013JP015264

PATIENT
  Age: 74 Year
  Sex: Female

DRUGS (2)
  1. PURSENNID [Suspect]
     Indication: CONSTIPATION
     Dosage: UNK, UNK
     Route: 048
  2. ALOSENN [Suspect]
     Dosage: UNK, UNK
     Route: 048

REACTIONS (1)
  - Blood uric acid increased [Unknown]
